FAERS Safety Report 9446413 (Version 1)
Quarter: 2013Q3

REPORT INFORMATION
  Report Type: Spontaneous
  Country: US (occurrence: US)
  Receive Date: 20130807
  Receipt Date: 20130807
  Transmission Date: 20140515
  Serious: Yes (Other)
  Sender: FDA-Public Use
  Company Number: US-PFIZER INC-2013230258

PATIENT
  Age: 56 Year
  Sex: Female

DRUGS (9)
  1. XELJANZ [Suspect]
     Indication: RHEUMATOID ARTHRITIS
     Dosage: 5 MG, 2X/DAY
     Route: 048
     Dates: start: 201305, end: 201305
  2. SYNTHROID [Concomitant]
     Dosage: UNK
  3. EFFEXOR [Concomitant]
     Dosage: UNK
  4. PROTONIX [Concomitant]
     Dosage: UNK
  5. DIOVAN HCT [Concomitant]
     Dosage: UNK
  6. ZOCOR [Concomitant]
     Dosage: UNK
  7. FISH OIL [Concomitant]
     Dosage: UNK
  8. PREDNISONE [Concomitant]
     Dosage: UNK
  9. METHOTREXATE [Concomitant]
     Dosage: UNK

REACTIONS (2)
  - Infected cyst [Recovered/Resolved]
  - Vaginal cyst [Recovered/Resolved]
